FAERS Safety Report 16913399 (Version 1)
Quarter: 2019Q4

REPORT INFORMATION
  Report Type: Spontaneous
  Country: CH (occurrence: CH)
  Receive Date: 20191014
  Receipt Date: 20191014
  Transmission Date: 20200122
  Serious: Yes (Other)
  Sender: FDA-Public Use
  Company Number: CH-ALK-ABELLO A/S-2019AA003404

PATIENT

DRUGS (1)
  1. PHARMALGEN APIS MELLIFERA [Suspect]
     Active Substance: APIS MELLIFERA
     Indication: ALLERGY TO ARTHROPOD STING
     Dosage: 11.1 MILLIGRAM
     Route: 058

REACTIONS (3)
  - Off label use [Recovered/Resolved]
  - Product use issue [Recovered/Resolved]
  - Abdominal pain lower [Recovered/Resolved]
